FAERS Safety Report 16420767 (Version 1)
Quarter: 2019Q2

REPORT INFORMATION
  Report Type: Spontaneous
  Country: US (occurrence: US)
  Receive Date: 20190612
  Receipt Date: 20190612
  Transmission Date: 20190711
  Serious: No
  Sender: FDA-Public Use
  Company Number: US-NOVOPROD-656400

PATIENT
  Age: 79 Year
  Sex: Male
  Weight: 78.01 kg

DRUGS (1)
  1. XULTOPHY 100/3.6 [Suspect]
     Active Substance: INSULIN DEGLUDEC\LIRAGLUTIDE
     Indication: TYPE 2 DIABETES MELLITUS
     Dosage: 40 IU, QD
     Route: 058
     Dates: start: 2018, end: 20190331

REACTIONS (5)
  - Abdominal pain upper [Unknown]
  - Nervousness [Unknown]
  - Abdominal discomfort [Unknown]
  - Pancreatic enzymes abnormal [Unknown]
  - Nausea [Unknown]

NARRATIVE: CASE EVENT DATE: 201808
